FAERS Safety Report 8281608-2 (Version None)
Quarter: 2012Q2

REPORT INFORMATION
  Report Type: 
  Country: None (occurrence: None)
  Receive Date: 20120410
  Receipt Date: 20120326
  Transmission Date: 20120825
  Serious: Yes (Other)
  Sender: FDA-Public Use
  Company Number: 2012MA004207

PATIENT
  Age: 5 Month
  Sex: Female
  Weight: 6.9 kg

DRUGS (4)
  1. MORPHINE [Concomitant]
  2. FEVERALL [Suspect]
     Indication: ANALGESIC THERAPY
     Dosage: 15 MG/KG;QID;IV
     Route: 042
  3. OPIODS [Concomitant]
  4. LOCAL ANAESTHESIA [Concomitant]

REACTIONS (2)
  - LIVER DISORDER [None]
  - ACCIDENTAL OVERDOSE [None]
